FAERS Safety Report 9535928 (Version 1)
Quarter: 2013Q2

REPORT INFORMATION
  Report Type: Spontaneous
  Country: US (occurrence: None)
  Receive Date: 20130507
  Receipt Date: 20130507
  Transmission Date: 20140414
  Serious: Yes (Life-Threatening, Hospitalization)
  Sender: FDA-Public Use
  Company Number: PHEH2013US002281

PATIENT
  Age: 68 Year
  Sex: Female
  Weight: 64.41 kg

DRUGS (1)
  1. AFINITOR (RAD) UNKNOWN [Suspect]
     Indication: PANCREATIC CARCINOMA
     Route: 048

REACTIONS (1)
  - Renal failure [None]
